FAERS Safety Report 12451246 (Version 3)
Quarter: 2016Q3

REPORT INFORMATION
  Report Type: Spontaneous
  Country: US (occurrence: US)
  Receive Date: 20160609
  Receipt Date: 20160824
  Transmission Date: 20161109
  Serious: Yes (Other)
  Sender: FDA-Public Use
  Company Number: US-NOVEN PHARMACEUTICALS, INC.-US2016001377

PATIENT

DRUGS (2)
  1. DAYTRANA [Suspect]
     Active Substance: METHYLPHENIDATE
     Indication: ATTENTION DEFICIT/HYPERACTIVITY DISORDER
     Dosage: 30 MG, UNKNOWN
     Route: 062
     Dates: start: 2014, end: 201605
  2. DAYTRANA [Suspect]
     Active Substance: METHYLPHENIDATE
     Dosage: USING ONE 10MG AND ONE 20MG PATCH AT A TIME, UNKNOWN
     Route: 062
     Dates: start: 201605, end: 201607

REACTIONS (8)
  - Verbal abuse [Unknown]
  - Off label use [Unknown]
  - Drug administered at inappropriate site [Recovered/Resolved]
  - Product quality issue [Recovered/Resolved]
  - Emotional disorder [Unknown]
  - Application site ulcer [Recovered/Resolved]
  - Impulsive behaviour [Unknown]
  - Wrong technique in product usage process [Recovered/Resolved]

NARRATIVE: CASE EVENT DATE: 2014
